FAERS Safety Report 23577723 (Version 2)
Quarter: 2025Q1

REPORT INFORMATION
  Report Type: Spontaneous
  Country: US (occurrence: US)
  Receive Date: 20240228
  Receipt Date: 20250303
  Transmission Date: 20250408
  Serious: No
  Sender: NOVO NORDISK
  Company Number: US-NOVOPROD-1134816

PATIENT
  Age: 31 Year
  Sex: Female

DRUGS (3)
  1. SAXENDA [Suspect]
     Active Substance: LIRAGLUTIDE
     Indication: Secondary hypertension
     Route: 058
     Dates: start: 20220311
  2. SAXENDA [Suspect]
     Active Substance: LIRAGLUTIDE
     Route: 058
  3. SAXENDA [Suspect]
     Active Substance: LIRAGLUTIDE
     Route: 058

REACTIONS (7)
  - Migraine [Unknown]
  - Hyperhidrosis [Not Recovered/Not Resolved]
  - Body mass index decreased [Unknown]
  - Night sweats [Unknown]
  - Intentional dose omission [Unknown]
  - Drug ineffective [Not Recovered/Not Resolved]
  - Off label use [Unknown]

NARRATIVE: CASE EVENT DATE: 20220311
